FAERS Safety Report 26073511 (Version 1)
Quarter: 2025Q4

REPORT INFORMATION
  Report Type: Spontaneous
  Country: US (occurrence: US)
  Receive Date: 20251121
  Receipt Date: 20251121
  Transmission Date: 20260117
  Serious: Yes (Other)
  Sender: DR REDDYS
  Company Number: None

PATIENT
  Age: 41 Year
  Sex: Female

DRUGS (5)
  1. DOXORUBICIN [Suspect]
     Active Substance: DOXORUBICIN
     Indication: Pulmonary artery intimal sarcoma
     Dates: start: 202006
  2. PACLITAXEL [Concomitant]
     Active Substance: PACLITAXEL
     Indication: Pulmonary artery intimal sarcoma
     Dosage: 5 DOSES OF PACLITAXEL WERE RECEIVED
     Dates: start: 202004
  3. HEPARIN [Concomitant]
     Active Substance: HEPARIN SODIUM
     Indication: Anticoagulant therapy
     Dates: start: 2019
  4. RIVAROXABAN [Concomitant]
     Active Substance: RIVAROXABAN
     Indication: Anticoagulant therapy
     Dates: start: 2019
  5. DEXRAZOXANE [Concomitant]
     Active Substance: DEXRAZOXANE
     Indication: Pulmonary artery intimal sarcoma
     Dosage: (CYCLE 6 AND 7)
     Dates: start: 202011

REACTIONS (4)
  - Right ventricular failure [Unknown]
  - Left ventricular dysfunction [Unknown]
  - Atrioventricular block first degree [Unknown]
  - Bundle branch block right [Unknown]
